FAERS Safety Report 5196496-0 (Version None)
Quarter: 2006Q4

REPORT INFORMATION
  Report Type: 
  Country: None (occurrence: None)
  Receive Date: 20061227
  Receipt Date: 20061220
  Transmission Date: 20070319
  Serious: Yes (Death)
  Sender: FDA-Public Use
  Company Number: 234160

PATIENT
  Age: 76 Year
  Sex: Male
  Weight: 82 kg

DRUGS (3)
  1. MABTHERA (RITUXIMAB) CONC FOR SOLUTION FOR INFUSION, 100MG [Suspect]
     Indication: DRUG USE FOR UNKNOWN INDICATION
     Dosage: 375 MG/M2, QOD, INTRAVENOUS
     Route: 042
     Dates: start: 20061219, end: 20061219
  2. VELCADE [Suspect]
     Indication: DRUG USE FOR UNKNOWN INDICATION
     Dosage: 1.6 MG/M2, QOD, INTRAVENOUS
     Route: 042
     Dates: start: 20061219
  3. ALLOPURINOL [Concomitant]

REACTIONS (4)
  - CARDIAC ARREST [None]
  - HYPERTENSION [None]
  - HYPOVOLAEMIC SHOCK [None]
  - SPLENIC HAEMORRHAGE [None]
